FAERS Safety Report 6101879-8 (Version None)
Quarter: 2009Q1

REPORT INFORMATION
  Report Type: 
  Country: None (occurrence: None)
  Receive Date: 20090303
  Receipt Date: 20090303
  Transmission Date: 20090719
  Serious: Yes (Other)
  Sender: FDA-Public Use
  Company Number: None

PATIENT
  Age: 9 Year
  Sex: Male
  Weight: 56.6996 kg

DRUGS (2)
  1. VIGAMOX [Suspect]
     Indication: CONJUNCTIVITIS INFECTIVE
     Dosage: 1 DROP 3 X'S DAY OPHTHALMIC ONE DROP IN EACH EYE
     Route: 047
     Dates: start: 20090227, end: 20090227
  2. VIGAAMOX [Concomitant]

REACTIONS (5)
  - ERYTHEMA [None]
  - EXOPHTHALMOS [None]
  - PRURITUS [None]
  - SKIN DISCOLOURATION [None]
  - SWELLING FACE [None]
